FAERS Safety Report 8224177-5 (Version None)
Quarter: 2012Q1

REPORT INFORMATION
  Report Type: 
  Country: None (occurrence: None)
  Receive Date: 20120320
  Receipt Date: 20120320
  Transmission Date: 20120608
  Serious: Yes (Life-Threatening, Hospitalization)
  Sender: FDA-Public Use
  Company Number: None

PATIENT
  Age: 62 Year
  Sex: Male
  Weight: 124.5 kg

DRUGS (1)
  1. NAPROXEN [Suspect]
     Indication: PAIN
     Dosage: 1 TAB BID PO
     Route: 048
     Dates: start: 20090729, end: 20111209

REACTIONS (2)
  - GASTROINTESTINAL HAEMORRHAGE [None]
  - ANAEMIA [None]
